FAERS Safety Report 11024838 (Version 1)
Quarter: 2015Q2

REPORT INFORMATION
  Report Type: Spontaneous
  Country: DE (occurrence: None)
  Receive Date: 20150410
  Receipt Date: 20150410
  Transmission Date: 20150821
  Serious: Yes (Hospitalization)
  Sender: FDA-Public Use
  Company Number: SP09279

PATIENT
  Age: 78 Year
  Sex: Female
  Weight: 58.7 kg

DRUGS (1)
  1. MOVIPREP [Suspect]
     Active Substance: ASCORBIC ACID\POLYETHYLENE GLYCOL 3350\POTASSIUM CHLORIDE\SODIUM ASCORBATE\SODIUM CHLORIDE\SODIUM SULFATE
     Indication: BOWEL PREPARATION
     Dosage: 2 SACHET, ORAL
     Route: 048
     Dates: start: 20150121, end: 20150122

REACTIONS (11)
  - General physical health deterioration [None]
  - Cerebrovascular accident [None]
  - Gait deviation [None]
  - Blood pressure increased [None]
  - Blood sodium decreased [None]
  - Blood glucose increased [None]
  - Confusional state [None]
  - Blood potassium decreased [None]
  - Diabetes mellitus [None]
  - Asthenia [None]
  - Dysarthria [None]

NARRATIVE: CASE EVENT DATE: 20150123
